FAERS Safety Report 6350860-2 (Version None)
Quarter: 2009Q3

REPORT INFORMATION
  Report Type: 
  Country: None (occurrence: None)
  Receive Date: 20090912
  Receipt Date: 20090622
  Transmission Date: 20100115
  Serious: No
  Sender: FDA-Public Use
  Company Number: US-ABBOTT-07P-163-0369788-00

PATIENT
  Sex: Female
  Weight: 54.48 kg

DRUGS (7)
  1. HUMIRA [Suspect]
     Indication: RHEUMATOID ARTHRITIS
     Route: 058
     Dates: start: 20040901
  2. HUMIRA [Suspect]
     Route: 058
     Dates: start: 20040901
  3. HUMIRA [Suspect]
     Route: 058
  4. METHOTREXATE [Concomitant]
     Indication: RHEUMATOID ARTHRITIS
     Route: 048
     Dates: start: 20040601
  5. NAPROXEN [Concomitant]
     Indication: RHEUMATOID ARTHRITIS
     Route: 048
  6. BIRTH CONTROL PILLS [Concomitant]
     Indication: CONTRACEPTION
     Route: 048
     Dates: start: 20070520
  7. FOLIC ACID [Concomitant]
     Indication: DRUG USE FOR UNKNOWN INDICATION
     Route: 048

REACTIONS (2)
  - INCORRECT DOSE ADMINISTERED [None]
  - NASOPHARYNGITIS [None]
